FAERS Safety Report 25597066 (Version 1)
Quarter: 2025Q3

REPORT INFORMATION
  Report Type: Spontaneous
  Country: EU (occurrence: EU)
  Receive Date: 20250723
  Receipt Date: 20250723
  Transmission Date: 20251021
  Serious: Yes (Life-Threatening, Hospitalization)
  Sender: MYLAN
  Company Number: EU-MYLANLABS-2025M1061264

PATIENT
  Age: 50 Year
  Sex: Male

DRUGS (12)
  1. DOXORUBICIN [Suspect]
     Active Substance: DOXORUBICIN
     Indication: Precursor T-lymphoblastic lymphoma/leukaemia
  2. BORTEZOMIB [Suspect]
     Active Substance: BORTEZOMIB
     Indication: Precursor T-lymphoblastic lymphoma/leukaemia
     Dosage: 1.3 MILLIGRAM/SQ. METER, QW (INFUSION ON DAYS 1, 4, 8, AND 11 IN A 21-DAY CYCLE; RECEIVED 3 CYCLES)
  3. FLUDARABINE [Suspect]
     Active Substance: FLUDARABINE PHOSPHATE
     Indication: Bone marrow conditioning regimen
  4. MYCOPHENOLATE MOFETIL [Suspect]
     Active Substance: MYCOPHENOLATE MOFETIL
     Indication: Prophylaxis against graft versus host disease
  5. TACROLIMUS [Suspect]
     Active Substance: TACROLIMUS
     Indication: Prophylaxis against graft versus host disease
  6. CYCLOPHOSPHAMIDE [Suspect]
     Active Substance: CYCLOPHOSPHAMIDE
     Indication: Precursor T-lymphoblastic lymphoma/leukaemia
  7. CYCLOPHOSPHAMIDE [Suspect]
     Active Substance: CYCLOPHOSPHAMIDE
     Indication: Prophylaxis against graft versus host disease
  8. VINCRISTINE [Suspect]
     Active Substance: VINCRISTINE
     Indication: Precursor T-lymphoblastic lymphoma/leukaemia
  9. DEXAMETHASONE [Suspect]
     Active Substance: DEXAMETHASONE
     Indication: Precursor T-lymphoblastic lymphoma/leukaemia
  10. NELARABINE [Suspect]
     Active Substance: NELARABINE
     Indication: Precursor T-lymphoblastic lymphoma/leukaemia
     Dosage: 15 GRAM PER SQUARE METRE, QD, ~1.5 G/M2 PER DAY ON DAYS 1, 3, AND 5 FOR 2 CYCLES
  11. TOLODODEKIN ALFA [Suspect]
     Active Substance: TOLODODEKIN ALFA
     Indication: Precursor T-lymphoblastic lymphoma/leukaemia
     Dosage: 16 MILLIGRAM/KILOGRAM, QW (ON DAYS 1, 8, AND 15 IN A 21-DAY CYCLE; RECEIVED 3 CYCLES)
     Dates: start: 202204
  12. DEXAMETHASONE [Suspect]
     Active Substance: DEXAMETHASONE
     Indication: Precursor T-lymphoblastic lymphoma/leukaemia

REACTIONS (11)
  - Thrombocytopenia [Unknown]
  - Infusion related reaction [Recovering/Resolving]
  - Febrile neutropenia [Recovering/Resolving]
  - Anaemia [Unknown]
  - Bronchopulmonary aspergillosis [Recovering/Resolving]
  - Clostridium difficile infection [Recovering/Resolving]
  - Abdominal infection [Recovering/Resolving]
  - Therapy non-responder [Unknown]
  - Off label use [Recovering/Resolving]
  - Disease progression [Unknown]
  - Off label use [Unknown]
